FAERS Safety Report 8924512 (Version 1)
Quarter: 2012Q4

REPORT INFORMATION
  Report Type: 
  Country: JP (occurrence: JP)
  Receive Date: 20121126
  Receipt Date: 20121126
  Transmission Date: 20130627
  Serious: Yes (Hospitalization, Other)
  Sender: FDA-Public Use
  Company Number: PHHY2012JP105429

PATIENT
  Age: 77 Year
  Sex: Female

DRUGS (1)
  1. WARFARIN [Suspect]
     Indication: ATRIAL FIBRILLATION
     Dosage: 1.5 mg, QD

REACTIONS (6)
  - Retroperitoneal haematoma [Recovered/Resolved]
  - Pelvic haematoma [Recovered/Resolved]
  - Subcutaneous haematoma [Recovered/Resolved]
  - Osteolysis [Recovered/Resolved]
  - Arthralgia [Recovered/Resolved]
  - Fall [Recovered/Resolved]
